FAERS Safety Report 21323446 (Version 1)
Quarter: 2022Q3

REPORT INFORMATION
  Report Type: Report from Study
  Country: US (occurrence: US)
  Receive Date: 20220912
  Receipt Date: 20220912
  Transmission Date: 20221027
  Serious: Yes (Hospitalization)
  Sender: FDA-Public Use
  Company Number: US-ABBVIE-22K-163-4534720-00

PATIENT
  Sex: Male

DRUGS (4)
  1. CREON [Suspect]
     Active Substance: PANCRELIPASE AMYLASE\PANCRELIPASE LIPASE\PANCRELIPASE PROTEASE
     Indication: Product used for unknown indication
     Route: 048
  2. COVID-19 VACCINE [Concomitant]
     Indication: COVID-19 immunisation
     Dosage: COVID VACCINE 1ST DOSE
     Dates: start: 20210302, end: 20210302
  3. COVID-19 VACCINE [Concomitant]
     Dosage: COVID VACCINE 2ND DOSE
     Dates: start: 20210329, end: 20210329
  4. COVID-19 VACCINE [Concomitant]
     Dosage: COVID VACCINE 3RD DOSE
     Dates: start: 20211128, end: 20211128

REACTIONS (5)
  - Abdominal pain upper [Unknown]
  - Pancreatitis [Unknown]
  - Diabetes mellitus [Unknown]
  - Dialysis [Unknown]
  - Unevaluable event [Unknown]
